FAERS Safety Report 9467159 (Version 1)
Quarter: 2013Q3

REPORT INFORMATION
  Report Type: Spontaneous
  Country: US (occurrence: US)
  Receive Date: 20130820
  Receipt Date: 20130820
  Transmission Date: 20140515
  Serious: No
  Sender: FDA-Public Use
  Company Number: US-B.I. PHARMACEUTICALS,INC./RIDGEFIELD-2013-BI-24576BP

PATIENT
  Age: 64 Year
  Sex: Female

DRUGS (9)
  1. SPIRIVA [Suspect]
     Indication: CHRONIC OBSTRUCTIVE PULMONARY DISEASE
     Dosage: 18 MCG
     Route: 055
  2. ADVAIR [Concomitant]
     Dosage: 50/500
     Route: 055
  3. DUONEB [Concomitant]
     Route: 055
  4. PROAIR [Concomitant]
     Route: 055
  5. ASPIRIN [Concomitant]
     Route: 048
  6. METOPROLOL [Concomitant]
     Route: 048
  7. CELEXA [Concomitant]
     Route: 048
  8. SIMVASTATIN [Concomitant]
     Route: 048
  9. OXYBUTYNIN [Concomitant]
     Route: 048

REACTIONS (2)
  - Pulmonary congestion [Not Recovered/Not Resolved]
  - Dyspnoea [Not Recovered/Not Resolved]
